FAERS Safety Report 11060159 (Version 1)
Quarter: 2015Q2

REPORT INFORMATION
  Report Type: Spontaneous
  Country: US (occurrence: US)
  Receive Date: 20150423
  Receipt Date: 20150423
  Transmission Date: 20150821
  Serious: Yes (Other)
  Sender: FDA-Public Use
  Company Number: US-ELI_LILLY_AND_COMPANY-US201504007118

PATIENT
  Sex: Female

DRUGS (3)
  1. PROZAC [Suspect]
     Active Substance: FLUOXETINE HYDROCHLORIDE
     Indication: ANXIETY
     Dosage: 20 MG, QD
     Route: 048
     Dates: start: 1995, end: 19990209
  2. PROZAC [Suspect]
     Active Substance: FLUOXETINE HYDROCHLORIDE
     Indication: DEPRESSION
  3. PRENAT                             /00023601/ [Concomitant]

REACTIONS (4)
  - Gestational hypertension [Not Recovered/Not Resolved]
  - Exposure during pregnancy [Recovered/Resolved]
  - Lactation disorder [Unknown]
  - Prolonged labour [Recovered/Resolved]
